FAERS Safety Report 13519129 (Version 1)
Quarter: 2017Q2

REPORT INFORMATION
  Report Type: Spontaneous
  Country: DE (occurrence: DE)
  Receive Date: 20170505
  Receipt Date: 20170505
  Transmission Date: 20170830
  Serious: Yes (Death, Life-Threatening, Other)
  Sender: FDA-Public Use
  Company Number: DE-MYLANLABS-2017M1027154

PATIENT

DRUGS (3)
  1. LYOGEN [Suspect]
     Active Substance: FLUPHENAZINE
     Dosage: 75 MG ALLE 3 WOCHEN
     Dates: start: 2010, end: 20151222
  2. XEPLION [Suspect]
     Active Substance: PALIPERIDONE PALMITATE
     Dosage: 100 MG ALLE 4 WOCHEN
     Dates: start: 20160119
  3. METFORMIN [Suspect]
     Active Substance: METFORMIN HYDROCHLORIDE
     Dosage: LZ-MEDIKATION

REACTIONS (1)
  - Sudden death [Fatal]

NARRATIVE: CASE EVENT DATE: 20160128
